FAERS Safety Report 9306404 (Version 1)
Quarter: 2013Q1

REPORT INFORMATION
  Report Type: Spontaneous
  Country: JP (occurrence: None)
  Receive Date: 20130307
  Receipt Date: 20130307
  Transmission Date: 20140127
  Serious: Yes (Hospitalization)
  Sender: FDA-Public Use
  Company Number: 2013-016517

PATIENT
  Age: 76 Year
  Sex: Male
  Weight: 61 kg

DRUGS (7)
  1. BAY86-5321 [Suspect]
     Indication: DIABETIC RETINAL OEDEMA
     Route: 031
     Dates: start: 20120316, end: 20121221
  2. HERBESSER  R  (DILTIAZEM  HYDROCHLORIDE) [Concomitant]
  3. BAYASPIRIN  (ACETYLSALICYLIC  ACID) [Concomitant]
  4. PLETAAL  (CILOSTAZOL) [Concomitant]
  5. JANUVIA  (SITAGLIPTIN  PHOSPHATE) [Concomitant]
  6. NOVORAPID  (INSULIN  ASPART) [Concomitant]
  7. LYRICA  (PREGABALIN) [Concomitant]

REACTIONS (1)
  - Peripheral arterial occlusive disease [None]
